FAERS Safety Report 6018121-9 (Version None)
Quarter: 2008Q4

REPORT INFORMATION
  Report Type: 
  Country: None (occurrence: None)
  Receive Date: 20081223
  Receipt Date: 20081215
  Transmission Date: 20090506
  Serious: Yes (Other)
  Sender: FDA-Public Use
  Company Number: ES-ELI_LILLY_AND_COMPANY-ES200811002973

PATIENT
  Age: 64 Year
  Sex: Male

DRUGS (2)
  1. CIALIS [Suspect]
     Indication: ERECTILE DYSFUNCTION
     Dosage: 1/4 OF A 20 MG TABLET DAILY
     Route: 048
     Dates: start: 20080813, end: 20080817
  2. CIALIS [Suspect]
     Dosage: 1/4 OF A 20 MG TABLET DAILY
     Route: 048
     Dates: start: 20080901, end: 20080902

REACTIONS (2)
  - HEADACHE [None]
  - PERIPHERAL SENSORY NEUROPATHY [None]
